FAERS Safety Report 10844377 (Version 2)
Quarter: 2015Q1

REPORT INFORMATION
  Report Type: Report from Study
  Country: US (occurrence: US)
  Receive Date: 20150220
  Receipt Date: 20150227
  Transmission Date: 20150721
  Serious: Yes (Hospitalization, Other)
  Sender: FDA-Public Use
  Company Number: US-ABBVIE-15K-163-1347208-00

PATIENT
  Age: 14 Year
  Sex: Male
  Weight: 40.86 kg

DRUGS (4)
  1. HUMIRA [Suspect]
     Active Substance: ADALIMUMAB
     Indication: CROHN^S DISEASE
     Route: 065
     Dates: start: 20141215, end: 20141215
  2. HUMIRA [Suspect]
     Active Substance: ADALIMUMAB
     Route: 065
     Dates: end: 201501
  3. TYLENOL [Concomitant]
     Active Substance: ACETAMINOPHEN
     Indication: PRODUCT USED FOR UNKNOWN INDICATION
  4. HUMIRA [Suspect]
     Active Substance: ADALIMUMAB
     Route: 065
     Dates: start: 20141229, end: 20141229

REACTIONS (12)
  - Abdominal pain [Recovered/Resolved]
  - Intestinal stenosis [Unknown]
  - Weight decreased [Unknown]
  - Haematuria [Recovered/Resolved]
  - Urinary tract infection [Unknown]
  - Appendicectomy [Unknown]
  - Lip swelling [Unknown]
  - Inflammation [Unknown]
  - Crohn^s disease [Unknown]
  - Small intestinal obstruction [Recovered/Resolved]
  - Lower respiratory tract infection [Unknown]
  - Chest X-ray abnormal [Unknown]

NARRATIVE: CASE EVENT DATE: 201501
